FAERS Safety Report 7094699-1 (Version None)
Quarter: 2010Q4

REPORT INFORMATION
  Report Type: 
  Country: None (occurrence: None)
  Receive Date: 20101110
  Receipt Date: 20081007
  Transmission Date: 20110411
  Serious: No
  Sender: FDA-Public Use
  Company Number: US-KINGPHARMUSA00001-K200801171

PATIENT
  Sex: Male
  Weight: 77.098 kg

DRUGS (7)
  1. SILVADENE [Suspect]
     Indication: DECUBITUS ULCER
     Dosage: 1/16 INCH THICK APPLICATION, BID
     Route: 061
     Dates: start: 20080101
  2. ALTACE [Suspect]
     Dosage: 1.25 MG, UNK
     Route: 048
     Dates: start: 20071001
  3. MIRAPEX [Concomitant]
     Dosage: .25 MG, UNK
  4. PROTONIX [Concomitant]
     Dosage: 40 MG, UNK
  5. CLONAZEPAM [Concomitant]
     Dosage: .5 MG, UNK
  6. MULTIVITAMINS PLUS IRON [Concomitant]
  7. ARANESP [Concomitant]
     Indication: BONE MARROW FAILURE
     Route: 042
     Dates: start: 20080701, end: 20080901

REACTIONS (5)
  - HAEMOLYSIS [None]
  - OEDEMA PERIPHERAL [None]
  - PRURITUS [None]
  - SCRATCH [None]
  - URTICARIA [None]
